FAERS Safety Report 9776004 (Version 2)
Quarter: 2013Q4

REPORT INFORMATION
  Report Type: Report from Study
  Country: PA (occurrence: PA)
  Receive Date: 20131220
  Receipt Date: 20131220
  Transmission Date: 20140711
  Serious: Yes (Hospitalization, Other)
  Sender: FDA-Public Use
  Company Number: PA-BRISTOL-MYERS SQUIBB COMPANY-19864925

PATIENT
  Age: 37 Year
  Sex: Female

DRUGS (15)
  1. PACLITAXEL [Suspect]
     Indication: BREAST CANCER METASTATIC
     Dosage: LAST DOSE:30/OCT/13-120MG?620MG
     Route: 042
     Dates: start: 20130703
  2. BLINDED: BEVACIZUMAB [Suspect]
     Indication: BREAST CANCER METASTATIC
     Dosage: LAST DOSE:06NOV13
     Route: 042
     Dates: start: 20130703
  3. BLINDED: PLACEBO [Suspect]
     Indication: BREAST CANCER METASTATIC
  4. GRANISETRON [Concomitant]
     Indication: PREMEDICATION
     Dates: start: 20130703
  5. RANITIDINE [Concomitant]
     Indication: ABDOMINAL PAIN
     Dosage: 03-JUL-2011-?12-JUN-2013 -ONGOING
     Dates: start: 20130703
  6. METOCLOPRAMIDE [Concomitant]
     Indication: ABDOMINAL PAIN
     Dates: start: 20130701
  7. PARACETAMOL [Concomitant]
     Indication: PREMEDICATION
     Dates: start: 20130703
  8. DEXAMETHASONE [Concomitant]
     Indication: PREMEDICATION
     Dates: start: 20130703
  9. DEXTROMETHORPHAN [Concomitant]
     Indication: COUGH
     Dates: start: 20130717
  10. LOPERAMIDE [Concomitant]
     Indication: DIARRHOEA
     Dates: start: 20130717
  11. ALPRAZOLAM [Concomitant]
     Indication: NAUSEA
     Dates: start: 20131009
  12. CARBOCISTEINE [Concomitant]
     Indication: COUGH
     Dates: start: 20130717
  13. MORPHINE SULFATE [Concomitant]
     Indication: ABDOMINAL PAIN
     Dates: start: 20131116
  14. ALUMINUM HYDROXIDE + MAGNESIUM HYDROXIDE [Concomitant]
     Indication: ABDOMINAL PAIN
     Dates: start: 20131101
  15. OMEPRAZOLE [Concomitant]
     Indication: ABDOMINAL PAIN
     Dates: start: 20131101

REACTIONS (3)
  - Cholecystitis [Recovering/Resolving]
  - Jaundice [Recovering/Resolving]
  - Drug-induced liver injury [Unknown]
